FAERS Safety Report 13456942 (Version 2)
Quarter: 2017Q3

REPORT INFORMATION
  Report Type: Report from Study
  Country: None (occurrence: US)
  Receive Date: 20170418
  Receipt Date: 20170823
  Transmission Date: 20171127
  Serious: Yes (Other)
  Sender: FDA-Public Use
  Company Number: US-ABBVIE-16K-163-1606351-00

PATIENT
  Sex: Female

DRUGS (2)
  1. HUMIRA [Suspect]
     Active Substance: ADALIMUMAB
     Indication: PSORIATIC ARTHROPATHY
     Route: 058
     Dates: start: 20160304
  2. HUMIRA [Suspect]
     Active Substance: ADALIMUMAB
     Indication: RHEUMATOID ARTHRITIS

REACTIONS (11)
  - Arthralgia [Not Recovered/Not Resolved]
  - Peripheral swelling [Unknown]
  - Bone pain [Unknown]
  - Joint stiffness [Unknown]
  - Gait disturbance [Unknown]
  - Exostosis [Unknown]
  - Joint swelling [Unknown]
  - Joint instability [Unknown]
  - Post-traumatic pain [Recovering/Resolving]
  - Musculoskeletal stiffness [Unknown]
  - Fall [Unknown]

NARRATIVE: CASE EVENT DATE: 2016
